FAERS Safety Report 15601605 (Version 1)
Quarter: 2018Q4

REPORT INFORMATION
  Report Type: Spontaneous
  Country: SA (occurrence: SA)
  Receive Date: 20181109
  Receipt Date: 20181109
  Transmission Date: 20190205
  Serious: Yes (Death, Hospitalization, Other)
  Sender: FDA-Public Use
  Company Number: SA-MYLANLABS-2018M1084126

PATIENT
  Age: 49 Year
  Sex: Female

DRUGS (11)
  1. CISPLATIN. [Suspect]
     Active Substance: CISPLATIN
     Indication: METASTASES TO LUNG
  2. FLUOROURACIL. [Suspect]
     Active Substance: FLUOROURACIL
     Indication: METASTASES TO CENTRAL NERVOUS SYSTEM
     Dosage: 3 CYCLES
     Route: 065
  3. ADRIAMYCIN [Concomitant]
     Active Substance: DOXORUBICIN HYDROCHLORIDE
     Indication: SQUAMOUS CELL BREAST CARCINOMA
     Route: 065
     Dates: end: 201606
  4. CISPLATIN. [Suspect]
     Active Substance: CISPLATIN
     Indication: METASTASES TO LIVER
  5. CISPLATIN. [Suspect]
     Active Substance: CISPLATIN
     Indication: SQUAMOUS CELL BREAST CARCINOMA
  6. FLUOROURACIL. [Suspect]
     Active Substance: FLUOROURACIL
     Indication: METASTASES TO LIVER
  7. FLUOROURACIL. [Suspect]
     Active Substance: FLUOROURACIL
     Indication: METASTASES TO LUNG
  8. FLUOROURACIL. [Suspect]
     Active Substance: FLUOROURACIL
     Indication: SQUAMOUS CELL BREAST CARCINOMA
  9. ENDOXAN                            /00021101/ [Concomitant]
     Active Substance: CYCLOPHOSPHAMIDE
     Indication: SQUAMOUS CELL BREAST CARCINOMA
     Dosage: 600 MG/M2 X 4 RECYCLE/21 DAYS
     Route: 065
     Dates: end: 201606
  10. CISPLATIN. [Suspect]
     Active Substance: CISPLATIN
     Indication: METASTASES TO CENTRAL NERVOUS SYSTEM
     Dosage: 3 CYCLES
     Route: 065
  11. TAXOTERE [Concomitant]
     Active Substance: DOCETAXEL
     Indication: SQUAMOUS CELL BREAST CARCINOMA
     Dosage: 75 MG/M2 X 4 RECYCLE/21 DAYS
     Route: 065
     Dates: end: 201606

REACTIONS (1)
  - Drug ineffective [Unknown]
